FAERS Safety Report 6261518-2 (Version None)
Quarter: 2009Q3

REPORT INFORMATION
  Report Type: 
  Country: None (occurrence: None)
  Receive Date: 20090707
  Receipt Date: 20090707
  Transmission Date: 20100115
  Serious: Yes (Life-Threatening)
  Sender: FDA-Public Use
  Company Number: None

PATIENT
  Age: 67 Year
  Sex: Female
  Weight: 83 kg

DRUGS (1)
  1. ERBITUX [Suspect]
     Indication: COLON CANCER
     Dosage: 800MG ONCE IV DRIP
     Route: 041
     Dates: start: 20090615, end: 20090615

REACTIONS (6)
  - CHEST PAIN [None]
  - DYSPNOEA [None]
  - INFUSION RELATED REACTION [None]
  - NAUSEA [None]
  - PRURITUS [None]
  - RASH [None]
